FAERS Safety Report 10088774 (Version 1)
Quarter: 2014Q2

REPORT INFORMATION
  Report Type: Spontaneous
  Country: US (occurrence: US)
  Receive Date: 20140421
  Receipt Date: 20140421
  Transmission Date: 20141212
  Serious: No
  Sender: FDA-Public Use
  Company Number: US-BIOGENIDEC-2014BI033987

PATIENT
  Age: 62 Year
  Sex: Female

DRUGS (4)
  1. TECFIDERA [Suspect]
     Indication: MULTIPLE SCLEROSIS
     Route: 048
     Dates: start: 20140124
  2. VITAMIN D-3 [Concomitant]
  3. LUTEIN PLUS BILBERRY [Concomitant]
  4. OMEGA-3-6-9 [Concomitant]

REACTIONS (1)
  - Headache [Unknown]
